FAERS Safety Report 4959134-5 (Version None)
Quarter: 2006Q1

REPORT INFORMATION
  Report Type: 
  Country: None (occurrence: None)
  Receive Date: 20060330
  Receipt Date: 20060330
  Transmission Date: 20060701
  Serious: Yes (Hospitalization)
  Sender: FDA-Public Use
  Company Number: None

PATIENT
  Sex: Female
  Weight: 79.8 kg

DRUGS (7)
  1. LENALIDOMIDE 15 MG/M2 [Suspect]
     Indication: GLIOBLASTOMA
     Dosage: 15 MG/M2 QD X 21 DAYS PO
     Route: 048
     Dates: start: 20060316, end: 20060328
  2. THYROID TAB [Concomitant]
  3. CELEXA [Concomitant]
  4. KEPPRA [Concomitant]
  5. LOVENOX [Concomitant]
  6. DECADRON SRC [Concomitant]
  7. INHALED PENTAMIDINE [Concomitant]

REACTIONS (4)
  - CARDIOMYOPATHY [None]
  - PAIN IN EXTREMITY [None]
  - PULMONARY EMBOLISM [None]
  - TROPONIN I INCREASED [None]
